FAERS Safety Report 9220941 (Version 2)
Quarter: 2013Q3

REPORT INFORMATION
  Report Type: Report from Study
  Country: US (occurrence: US)
  Receive Date: 20130409
  Receipt Date: 20130702
  Transmission Date: 20140515
  Serious: Yes (Hospitalization)
  Sender: FDA-Public Use
  Company Number: US-ACTELION-A-US2012-75173

PATIENT
  Age: 86 Year
  Sex: Female

DRUGS (13)
  1. TRACLEER [Suspect]
     Indication: PULMONARY ARTERIAL HYPERTENSION
     Dosage: 125
     Route: 048
     Dates: start: 201212
  2. TRACLEER [Suspect]
     Dosage: 62.5 UNK, UNK
     Route: 048
     Dates: start: 20121106, end: 201212
  3. POTASSIUM [Concomitant]
  4. FUROSEMIDE [Concomitant]
  5. ASPIRIN [Concomitant]
  6. SPIRIVA [Concomitant]
  7. XARELTO [Concomitant]
  8. PRAVASTATIN [Concomitant]
  9. METOPROLOL [Concomitant]
  10. SPIRONOLACTONE [Concomitant]
  11. PREDNISONE [Concomitant]
  12. ALBUTEROL [Concomitant]
  13. COUMADIN [Concomitant]

REACTIONS (6)
  - Cystitis [Unknown]
  - Dyspnoea [Unknown]
  - Anaemia [Unknown]
  - Pulmonary hypertension [Recovering/Resolving]
  - Local swelling [Recovering/Resolving]
  - Sleep disorder [Unknown]
